FAERS Safety Report 5917185-8 (Version None)
Quarter: 2008Q4

REPORT INFORMATION
  Report Type: 
  Country: None (occurrence: None)
  Receive Date: 20081014
  Receipt Date: 20081007
  Transmission Date: 20090506
  Serious: Yes (Hospitalization)
  Sender: FDA-Public Use
  Company Number: US-BRISTOL-MYERS SQUIBB COMPANY-14366538

PATIENT
  Sex: Female

DRUGS (9)
  1. PRINIVIL [Suspect]
     Indication: HYPERTENSION
     Route: 048
     Dates: start: 20071107, end: 20071115
  2. IRBESARTAN [Suspect]
     Indication: HYPERTENSION
     Route: 065
     Dates: end: 20071116
  3. POTASSIUM CHLORIDE [Suspect]
     Indication: HYPOKALAEMIA
     Route: 065
     Dates: start: 20071113, end: 20071115
  4. SYNTHROID [Concomitant]
  5. ASPIRIN [Concomitant]
  6. CARVEDILOL [Concomitant]
  7. FLUVASTATIN SODIUM [Concomitant]
  8. FUROSEMIDE [Concomitant]
  9. GLIMEPIRIDE [Concomitant]

REACTIONS (2)
  - BLOOD POTASSIUM INCREASED [None]
  - HYPOKALAEMIA [None]
